FAERS Safety Report 21116322 (Version 2)
Quarter: 2022Q3

REPORT INFORMATION
  Report Type: Spontaneous
  Country: PL (occurrence: PL)
  Receive Date: 20220721
  Receipt Date: 20220825
  Transmission Date: 20221027
  Serious: Yes (Death)
  Sender: FDA-Public Use
  Company Number: PL-BoehringerIngelheim-2022-BI-182993

PATIENT
  Age: 83 Year
  Sex: Male

DRUGS (1)
  1. PRAXBIND [Suspect]
     Active Substance: IDARUCIZUMAB
     Indication: Gastrointestinal haemorrhage
     Dosage: 2 VIALS (2X2,5G) 5 G IN TOTAL
     Dates: start: 20220630, end: 20220630

REACTIONS (1)
  - Haematemesis [Fatal]

NARRATIVE: CASE EVENT DATE: 20220629
